FAERS Safety Report 20881477 (Version 1)
Quarter: 2022Q2

REPORT INFORMATION
  Report Type: Spontaneous
  Country: US (occurrence: US)
  Receive Date: 20220526
  Receipt Date: 20220526
  Transmission Date: 20220721
  Serious: No
  Sender: FDA-Public Use
  Company Number: US-RADIUS HEALTH INC.-2022US000527

PATIENT
  Age: 73 Year
  Sex: Female
  Weight: 43.084 kg

DRUGS (6)
  1. TYMLOS [Suspect]
     Active Substance: ABALOPARATIDE
     Indication: Osteoporosis
     Dosage: 80 MICROGRAM, QD
     Route: 058
     Dates: start: 20220203, end: 20220205
  2. TYMLOS [Suspect]
     Active Substance: ABALOPARATIDE
     Dosage: TITRATE FROM 1 CLICK DAILY UP TO 8 CLICKS AS TOLERATED
     Route: 058
  3. CALCIUM\CHOLECALCIFEROL [Concomitant]
     Active Substance: CALCIUM\CHOLECALCIFEROL
     Indication: Product used for unknown indication
  4. LOSARTAN POTASSIUM [Concomitant]
     Active Substance: LOSARTAN POTASSIUM
     Indication: Product used for unknown indication
  5. LEVOXYL [Concomitant]
     Active Substance: LEVOTHYROXINE SODIUM
     Indication: Product used for unknown indication
  6. ATORVASTATIN CALCIUM [Concomitant]
     Active Substance: ATORVASTATIN CALCIUM
     Indication: Product used for unknown indication

REACTIONS (6)
  - Initial insomnia [Recovered/Resolved]
  - Nausea [Unknown]
  - Palpitations [Recovered/Resolved]
  - Product dose omission issue [Unknown]
  - Intentional product misuse [Unknown]
  - Product quality issue [Unknown]

NARRATIVE: CASE EVENT DATE: 20220203
